FAERS Safety Report 17324260 (Version 1)
Quarter: 2020Q1

REPORT INFORMATION
  Report Type: Spontaneous
  Country: US (occurrence: US)
  Receive Date: 20200124
  Receipt Date: 20200124
  Transmission Date: 20200409
  Serious: No
  Sender: FDA-Public Use
  Company Number: None

PATIENT
  Age: 47 Year
  Sex: Female
  Weight: 47.25 kg

DRUGS (1)
  1. AIMOVIG [Suspect]
     Active Substance: ERENUMAB-AOOE
     Indication: MIGRAINE
     Dosage: ?          QUANTITY:1 INJECTION(S);OTHER FREQUENCY:1 X A MONTH;?
     Route: 030
     Dates: start: 20190627, end: 20191227

REACTIONS (9)
  - Gait disturbance [None]
  - Vitamin B12 abnormal [None]
  - Pain [None]
  - Vomiting [None]
  - Lipid metabolism disorder [None]
  - Arthropathy [None]
  - Gastric disorder [None]
  - Gastrooesophageal reflux disease [None]
  - Back disorder [None]

NARRATIVE: CASE EVENT DATE: 20200106
